FAERS Safety Report 15778765 (Version 2)
Quarter: 2019Q1

REPORT INFORMATION
  Report Type: Spontaneous
  Country: CN (occurrence: CN)
  Receive Date: 20190101
  Receipt Date: 20190103
  Transmission Date: 20190417
  Serious: Yes (Other)
  Sender: FDA-Public Use
  Company Number: CN-ROCHE-2235731

PATIENT
  Age: 36 Year
  Sex: Female

DRUGS (6)
  1. OXALIPLATIN. [Concomitant]
     Active Substance: OXALIPLATIN
     Indication: ADENOCARCINOMA GASTRIC
     Route: 065
     Dates: start: 20180523
  2. XELODA [Suspect]
     Active Substance: CAPECITABINE
     Route: 065
     Dates: start: 20180701
  3. XELODA [Suspect]
     Active Substance: CAPECITABINE
     Indication: ADENOCARCINOMA GASTRIC
     Route: 065
     Dates: start: 20180523
  4. OXALIPLATIN. [Concomitant]
     Active Substance: OXALIPLATIN
     Indication: METASTASES TO LYMPH NODES
     Dosage: FROM 22-NOV-2017 TO 08-FEB-2018, XELOX CHEMOTHERAPY REGIMEN (OXALIPLATIN AND CAPECITABINE) WAS GIVEN
     Route: 065
     Dates: start: 20171122, end: 20180208
  5. XELODA [Suspect]
     Active Substance: CAPECITABINE
     Indication: METASTASES TO LYMPH NODES
     Dosage: FROM 22-NOV-2017 TO 08-FEB-2018, XELOX CHEMOTHERAPY REGIMEN (OXALIPLATIN AND CAPECITABINE) WAS GIVEN
     Route: 065
     Dates: start: 20171122, end: 20180208
  6. OXALIPLATIN. [Concomitant]
     Active Substance: OXALIPLATIN
     Route: 065
     Dates: start: 20180701

REACTIONS (6)
  - Small intestinal obstruction [Recovering/Resolving]
  - Ascites [Unknown]
  - Abdominal distension [Unknown]
  - Pain [Unknown]
  - Diarrhoea [Unknown]
  - Bone marrow failure [Unknown]

NARRATIVE: CASE EVENT DATE: 2018
